FAERS Safety Report 7047876-X (Version None)
Quarter: 2010Q4

REPORT INFORMATION
  Report Type: 
  Country: None (occurrence: None)
  Receive Date: 20101015
  Receipt Date: 20101007
  Transmission Date: 20110411
  Serious: Yes (Hospitalization)
  Sender: FDA-Public Use
  Company Number: JP-TEVA-248785ISR

PATIENT
  Age: 63 Year
  Sex: Female
  Weight: 49.6 kg

DRUGS (2)
  1. CISPLATIN [Suspect]
     Indication: LUNG NEOPLASM MALIGNANT
     Dates: start: 20100819, end: 20100819
  2. GEMCITABINE [Suspect]
     Indication: LUNG NEOPLASM MALIGNANT
     Dates: start: 20100819, end: 20100819

REACTIONS (2)
  - DRUG ERUPTION [None]
  - ECZEMA [None]
